FAERS Safety Report 7336959-2 (Version None)
Quarter: 2011Q1

REPORT INFORMATION
  Report Type: 
  Country: None (occurrence: None)
  Receive Date: 20110228
  Receipt Date: 20110217
  Transmission Date: 20110831
  Serious: Yes (Life-Threatening, Hospitalization)
  Sender: FDA-Public Use
  Company Number: DSA_45045_2011

PATIENT
  Sex: Male

DRUGS (1)
  1. XENAZINE [Suspect]
     Indication: TOURETTE'S DISORDER
     Dosage: 25 MG Q AM, 12.5 MG Q AFTERNON AND 25 MG Q PM ORAL
     Route: 048
     Dates: start: 20100801

REACTIONS (1)
  - SUICIDE ATTEMPT [None]
